FAERS Safety Report 8028394-9 (Version None)
Quarter: 2012Q1

REPORT INFORMATION
  Report Type: 
  Country: None (occurrence: None)
  Receive Date: 20120106
  Receipt Date: 20120105
  Transmission Date: 20120608
  Serious: Yes (Hospitalization)
  Sender: FDA-Public Use
  Company Number: NL-ROCHE-1027982

PATIENT
  Sex: Female
  Weight: 48 kg

DRUGS (3)
  1. CALCIUM CARBONATE [Concomitant]
     Route: 048
  2. XELODA [Suspect]
     Indication: COLON CANCER METASTATIC
     Route: 048
     Dates: start: 20111117, end: 20111213
  3. OMEPRAZOLE [Concomitant]
     Route: 048

REACTIONS (1)
  - DELIRIUM [None]
